FAERS Safety Report 8955522 (Version 1)
Quarter: 2012Q4

REPORT INFORMATION
  Report Type: 
  Country: DK (occurrence: DK)
  Receive Date: 20121207
  Receipt Date: 20121207
  Transmission Date: 20130627
  Serious: Yes (Disabling)
  Sender: FDA-Public Use
  Company Number: DK-ROCHE-1164425

PATIENT
  Sex: Female

DRUGS (1)
  1. BONVIVA [Suspect]
     Indication: OSTEOPOROSIS
     Route: 048
     Dates: start: 20101028, end: 20121015

REACTIONS (2)
  - Fibula fracture [Unknown]
  - Tibia fracture [Unknown]
